FAERS Safety Report 7192314-X (Version None)
Quarter: 2010Q4

REPORT INFORMATION
  Report Type: 
  Country: None (occurrence: None)
  Receive Date: 20101223
  Receipt Date: 20101215
  Transmission Date: 20110411
  Serious: Yes (Life-Threatening)
  Sender: FDA-Public Use
  Company Number: GB-ASTRAZENECA-2010SE59327

PATIENT
  Age: 37 Year
  Sex: Female

DRUGS (5)
  1. SEROQUEL XR [Suspect]
     Route: 048
     Dates: start: 20100827, end: 20101101
  2. ABILIFY [Concomitant]
     Indication: DEPRESSION
     Route: 048
     Dates: start: 20100723, end: 20100813
  3. ABILIFY [Concomitant]
     Indication: PSYCHOTIC DISORDER
     Route: 048
     Dates: start: 20100723, end: 20100813
  4. OLANZAPINE [Concomitant]
     Indication: DEPRESSION
     Dates: start: 20100123, end: 20100723
  5. OLANZAPINE [Concomitant]
     Indication: PSYCHOTIC DISORDER
     Dates: start: 20100123, end: 20100723

REACTIONS (1)
  - NEUTROPENIA [None]
